FAERS Safety Report 7806359-7 (Version None)
Quarter: 2011Q4

REPORT INFORMATION
  Report Type: 
  Country: None (occurrence: None)
  Receive Date: 20111011
  Receipt Date: 20110928
  Transmission Date: 20120403
  Serious: Yes (Other)
  Sender: FDA-Public Use
  Company Number: US-ELI_LILLY_AND_COMPANY-US201109008739

PATIENT
  Sex: Female

DRUGS (3)
  1. PRENATAL VITAMINS                  /01549301/ [Concomitant]
  2. LAMICTAL [Concomitant]
  3. CYMBALTA [Suspect]
     Indication: BIPOLAR DISORDER
     Dosage: 40 MG, QD
     Dates: start: 20070101

REACTIONS (3)
  - OFF LABEL USE [None]
  - ABORTION SPONTANEOUS [None]
  - MATERNAL EXPOSURE DURING PREGNANCY [None]
